FAERS Safety Report 8330191-1 (Version None)
Quarter: 2012Q2

REPORT INFORMATION
  Report Type: 
  Country: None (occurrence: None)
  Receive Date: 20120430
  Receipt Date: 20120418
  Transmission Date: 20120825
  Serious: Yes (Hospitalization)
  Sender: FDA-Public Use
  Company Number: 2012095876

PATIENT
  Age: 84 Year
  Sex: Male

DRUGS (10)
  1. FRAGMIN [Suspect]
     Indication: ANTICOAGULANT THERAPY
     Dosage: 1 DF, 1X/DAY, SUBCUTANEOUS
     Route: 058
     Dates: start: 20120223, end: 20120225
  2. MIDAZOLAM HCL [Concomitant]
  3. OMEPRAZOLE [Concomitant]
  4. HUMALOG [Concomitant]
  5. LOVENOX [Suspect]
     Indication: ANTICOAGULANT THERAPY
     Dosage: 8000 IU, 2 X/DAY, SUBCUTANEOUS 4000 IU, 1X/DAY, SUBCAUTANEOUS
     Route: 058
     Dates: start: 20120226, end: 20120226
  6. LOVENOX [Suspect]
     Indication: ANTICOAGULANT THERAPY
     Dosage: 8000 IU, 2 X/DAY, SUBCUTANEOUS 4000 IU, 1X/DAY, SUBCAUTANEOUS
     Route: 058
     Dates: start: 20120227, end: 20120229
  7. CALCIPARINE [Suspect]
     Indication: ANTICOAGULANT THERAPY
     Dosage: 5000 IU, 2 X/DAY, SUBCUTANEOUS 1150 IU/HOUR (CURATIVE DOSE), SUBCUTANEOUS
     Route: 058
     Dates: start: 20120229, end: 20120303
  8. CALCIPARINE [Suspect]
     Indication: ANTICOAGULANT THERAPY
     Dosage: 5000 IU, 2 X/DAY, SUBCUTANEOUS 1150 IU/HOUR (CURATIVE DOSE), SUBCUTANEOUS
     Route: 058
     Dates: start: 20120303, end: 20120303
  9. SUFENTA PRESERVATIVE FREE [Concomitant]
  10. AUGMENTIN '125' [Concomitant]

REACTIONS (2)
  - HEPARIN-INDUCED THROMBOCYTOPENIA [None]
  - PHLEBITIS [None]
